FAERS Safety Report 21130595 (Version 5)
Quarter: 2023Q1

REPORT INFORMATION
  Report Type: Other
  Country: CA (occurrence: None)
  Receive Date: 20220726
  Receipt Date: 20230131
  Transmission Date: 20230418
  Serious: Yes (Other)
  Sender: FDA-Public Use
  Company Number: CA-ROCHE-2615620

PATIENT
  Age: 55 Year
  Sex: Male

DRUGS (7)
  1. OCREVUS [Suspect]
     Active Substance: OCRELIZUMAB
     Indication: Relapsing-remitting multiple sclerosis
     Dosage: 300 MG AT DAY 0 AND 14, THEN 600 MG EVERY 6 MONTH
     Route: 042
     Dates: start: 20200527
  2. OCREVUS [Suspect]
     Active Substance: OCRELIZUMAB
     Dosage: 300 MG AT DAY 0 AND 14, THEN 600 MG EVERY 6 MONTH
     Route: 042
     Dates: start: 20200602
  3. BISOPROLOL [Concomitant]
     Active Substance: BISOPROLOL
  4. TAMSULOSIN [Concomitant]
     Active Substance: TAMSULOSIN
  5. IRBESARTAN [Concomitant]
     Active Substance: IRBESARTAN
  6. SYNTHROID [Concomitant]
     Active Substance: LEVOTHYROXINE SODIUM
  7. NORTRIPTYLINE [Concomitant]
     Active Substance: NORTRIPTYLINE

REACTIONS (12)
  - Cystitis [Unknown]
  - Pollakiuria [Not Recovered/Not Resolved]
  - Confusional state [Unknown]
  - Micturition urgency [Recovered/Resolved]
  - Infusion related reaction [Recovered/Resolved]
  - Alopecia [Unknown]
  - Amnesia [Not Recovered/Not Resolved]
  - Alopecia [Not Recovered/Not Resolved]
  - Swelling [Recovered/Resolved]
  - Mastication disorder [Recovered/Resolved]
  - Ear infection [Recovered/Resolved]
  - Fatigue [Not Recovered/Not Resolved]

NARRATIVE: CASE EVENT DATE: 20200527
